FAERS Safety Report 16957528 (Version 1)
Quarter: 2019Q4

REPORT INFORMATION
  Report Type: Spontaneous
  Country: US (occurrence: US)
  Receive Date: 20191024
  Receipt Date: 20191024
  Transmission Date: 20200122
  Serious: Yes (Death)
  Sender: FDA-Public Use
  Company Number: US-JNJFOC-20191018865

PATIENT
  Age: 63 Year
  Sex: Male

DRUGS (1)
  1. ERDAFITINIB TABLET [Suspect]
     Active Substance: ERDAFITINIB
     Indication: PRODUCT USED FOR UNKNOWN INDICATION
     Route: 048

REACTIONS (1)
  - Death [Fatal]

NARRATIVE: CASE EVENT DATE: 20190926
